FAERS Safety Report 5638051-1 (Version None)
Quarter: 2008Q1

REPORT INFORMATION
  Report Type: 
  Country: None (occurrence: None)
  Receive Date: 20080222
  Receipt Date: 20080222
  Transmission Date: 20080703
  Serious: Yes (Death)
  Sender: FDA-Public Use
  Company Number: None

PATIENT
  Age: 72 Year
  Sex: Female
  Weight: 94.8 kg

DRUGS (2)
  1. LOVENOX [Suspect]
     Indication: ANTICOAGULANT THERAPY
     Dosage: BID  PO
     Route: 048
     Dates: start: 20071022, end: 20071109
  2. LOVENOX [Suspect]
     Indication: ATRIAL FIBRILLATION
     Dosage: BID  PO
     Route: 048
     Dates: start: 20071022, end: 20071109

REACTIONS (3)
  - BASAL GANGLIA HAEMORRHAGE [None]
  - MUSCULAR WEAKNESS [None]
  - SPEECH DISORDER [None]
